FAERS Safety Report 6590669-8 (Version None)
Quarter: 2010Q1

REPORT INFORMATION
  Report Type: 
  Country: None (occurrence: None)
  Receive Date: 20100219
  Receipt Date: 20100209
  Transmission Date: 20100710
  Serious: Yes (Hospitalization)
  Sender: FDA-Public Use
  Company Number: B0627979A

PATIENT
  Age: 4 Year
  Sex: Female

DRUGS (2)
  1. LAMOTRIGINE [Suspect]
     Indication: EPILEPSY
     Route: 048
  2. VALPROATE SODIUM [Suspect]
     Indication: EPILEPSY
     Route: 065

REACTIONS (18)
  - CONVULSION [None]
  - DRUG HYPERSENSITIVITY [None]
  - DRUG RASH WITH EOSINOPHILIA AND SYSTEMIC SYMPTOMS [None]
  - HEPATOMEGALY [None]
  - HYDROTHORAX [None]
  - HYPERAEMIA [None]
  - HYPERPYREXIA [None]
  - LYMPHADENOPATHY [None]
  - MALAISE [None]
  - PLEURAL EFFUSION [None]
  - PRURITUS [None]
  - PYREXIA [None]
  - RASH [None]
  - RASH MACULO-PAPULAR [None]
  - SHOCK [None]
  - SPLENOMEGALY [None]
  - TACHYPNOEA [None]
  - TONSILLAR DISORDER [None]
